FAERS Safety Report 8022365-4 (Version None)
Quarter: 2012Q1

REPORT INFORMATION
  Report Type: 
  Country: None (occurrence: None)
  Receive Date: 20120104
  Receipt Date: 20111227
  Transmission Date: 20120608
  Serious: Yes (Hospitalization, Other)
  Sender: FDA-Public Use
  Company Number: US-ACTELION-A-NJ2011-50666

PATIENT

DRUGS (35)
  1. TRACLEER [Suspect]
     Indication: PULMONARY ARTERIAL HYPERTENSION
     Dosage: 125 MG, BID
     Route: 048
     Dates: end: 20111210
  2. DILAUDID [Concomitant]
  3. VANCOMYCIN [Concomitant]
  4. FOLVITE [Concomitant]
  5. ASCORBIC ACID [Concomitant]
  6. PEPCID [Concomitant]
  7. NEURONTIN [Concomitant]
  8. MULTIPLE VITAMIN [Concomitant]
  9. HEPARIN [Concomitant]
  10. TRACLEER [Suspect]
     Dosage: 62.5 MG, BID
     Route: 048
     Dates: start: 20100416
  11. TRACLEER [Suspect]
     Dosage: 62.5 MG, BID
     Route: 048
     Dates: start: 20111220
  12. VENTAVIS [Concomitant]
     Indication: PULMONARY ARTERIAL HYPERTENSION
     Dosage: 5 ?G, Q 6 HOURS
     Route: 055
  13. ACETAMINOPHEN [Concomitant]
  14. BENADRYL [Concomitant]
  15. NITROSTAT [Concomitant]
  16. KAYEXALATE [Concomitant]
  17. DURAGESIC-100 [Concomitant]
  18. FLONASE [Concomitant]
  19. CAMPHOR W/MENTHOL [Concomitant]
  20. VITAMIN B COMPLEX CAP [Concomitant]
  21. PHOSLO [Concomitant]
  22. SODIUM CHLORIDE [Concomitant]
  23. LASIX [Concomitant]
  24. ALBUMIN (HUMAN) [Concomitant]
  25. BACITRACIN W/POLYMYXIN [Concomitant]
  26. MOM [Concomitant]
  27. VITAMIN D2 [Concomitant]
  28. OSCAL D [Concomitant]
  29. AZACTAM [Concomitant]
  30. CIPROFLOXACIN [Concomitant]
  31. AQUAPHOR [Concomitant]
  32. FOLVITE [Concomitant]
  33. REGLAN [Concomitant]
  34. ZOFRAN [Concomitant]
  35. ATROPINE [Concomitant]

REACTIONS (11)
  - SICKLE CELL ANAEMIA WITH CRISIS [None]
  - ASPARTATE AMINOTRANSFERASE INCREASED [None]
  - BLOOD BILIRUBIN INCREASED [None]
  - DYSPNOEA [None]
  - TRANSFUSION [None]
  - LIVER FUNCTION TEST ABNORMAL [None]
  - BLOOD ALKALINE PHOSPHATASE INCREASED [None]
  - FATIGUE [None]
  - SOMNOLENCE [None]
  - KIDNEY INFECTION [None]
  - ALANINE AMINOTRANSFERASE INCREASED [None]
